FAERS Safety Report 6385901-X (Version None)
Quarter: 2009Q4

REPORT INFORMATION
  Report Type: 
  Country: None (occurrence: None)
  Receive Date: 20091002
  Receipt Date: 20090225
  Transmission Date: 20100525
  Serious: No
  Sender: FDA-Public Use
  Company Number: US-ASTRAZENECA-2009UW05210

PATIENT
  Sex: Female

DRUGS (3)
  1. ARIMIDEX [Suspect]
     Dosage: UNKNOWN
     Route: 048
  2. EFFEXOR [Suspect]
     Indication: ANXIETY
     Dosage: UNKNOWN
     Route: 065
  3. ZOLADEX [Suspect]
     Dosage: MONTHLY
     Route: 058

REACTIONS (4)
  - ANXIETY [None]
  - DISTURBANCE IN ATTENTION [None]
  - NAUSEA [None]
  - TACHYCARDIA [None]
